FAERS Safety Report 8011111-6 (Version None)
Quarter: 2011Q4

REPORT INFORMATION
  Report Type: 
  Country: None (occurrence: None)
  Receive Date: 20111222
  Receipt Date: 20111219
  Transmission Date: 20120403
  Serious: Yes (Other)
  Sender: FDA-Public Use
  Company Number: AUR-APL-2011-05816

PATIENT
  Age: 84 Year
  Sex: Female
  Weight: 95 kg

DRUGS (2)
  1. RAMIPRIL [Suspect]
     Indication: PRODUCT USED FOR UNKNOWN INDICATION
     Dates: start: 20111101
  2. NOVOMIX (INSULIN ASPART) [Concomitant]

REACTIONS (3)
  - SWOLLEN TONGUE [None]
  - OEDEMA MOUTH [None]
  - LIP SWELLING [None]
